FAERS Safety Report 25399944 (Version 5)
Quarter: 2025Q3

REPORT INFORMATION
  Report Type: Report from Study
  Country: CL (occurrence: CL)
  Receive Date: 20250605
  Receipt Date: 20250730
  Transmission Date: 20251020
  Serious: Yes (Hospitalization, Other)
  Sender: TAKEDA
  Company Number: CL-TAKEDA-2025TUS032485

PATIENT
  Age: 14 Year
  Sex: Male

DRUGS (4)
  1. IDURSULFASE [Suspect]
     Active Substance: IDURSULFASE
     Indication: Supplementation therapy
     Dosage: 0.5MG/KG, 1/WEEK
  2. IDURSULFASE [Suspect]
     Active Substance: IDURSULFASE
  3. IDURSULFASE [Suspect]
     Active Substance: IDURSULFASE
  4. IDURSULFASE [Suspect]
     Active Substance: IDURSULFASE
     Dosage: 0.5MG/KG, 1/WEEK

REACTIONS (11)
  - Haematochezia [Unknown]
  - Macroglossia [Recovered/Resolved]
  - Endotracheal intubation complication [Recovered/Resolved]
  - Anal fissure [Recovered/Resolved]
  - Haemorrhoids [Recovered/Resolved]
  - Gastric dilatation [Unknown]
  - Abdominal pain upper [Unknown]
  - Restlessness [Unknown]
  - Abdominal distension [Recovering/Resolving]
  - Flatulence [Unknown]
  - Somnolence [Recovering/Resolving]

NARRATIVE: CASE EVENT DATE: 20250324
